FAERS Safety Report 19594908 (Version 1)
Quarter: 2021Q3

REPORT INFORMATION
  Report Type: Spontaneous
  Country: JP (occurrence: JP)
  Receive Date: 20210722
  Receipt Date: 20210722
  Transmission Date: 20211014
  Serious: Yes (Other)
  Sender: FDA-Public Use
  Company Number: JP-TEVA-2021-JP-1933561

PATIENT
  Age: 1 Year
  Sex: Male

DRUGS (3)
  1. DOCETAXEL. [Suspect]
     Active Substance: DOCETAXEL
     Indication: ATYPICAL TERATOID/RHABDOID TUMOUR OF CNS
     Dosage: 100 MG/M2 DAILY; ON DAY 8
     Route: 065
  2. METHOTREXATE. [Concomitant]
     Active Substance: METHOTREXATE
     Indication: ATYPICAL TERATOID/RHABDOID TUMOUR OF CNS
     Dosage: 2G
     Route: 037
  3. GEMCITABINE. [Suspect]
     Active Substance: GEMCITABINE
     Indication: ATYPICAL TERATOID/RHABDOID TUMOUR OF CNS
     Dosage: 900 MG/M2 DAILY; ON DAY 1 AND 8
     Route: 065

REACTIONS (3)
  - Face oedema [Unknown]
  - Non-pitting oedema [Unknown]
  - Haematotoxicity [Unknown]
